FAERS Safety Report 10120491 (Version 2)
Quarter: 2014Q2

REPORT INFORMATION
  Report Type: Report from Study
  Country: BR (occurrence: BR)
  Receive Date: 20140425
  Receipt Date: 20140503
  Transmission Date: 20141212
  Serious: Yes (Hospitalization)
  Sender: FDA-Public Use
  Company Number: PHHO2014BR005980

PATIENT
  Age: 50 Year
  Sex: Female
  Weight: 77.2 kg

DRUGS (7)
  1. SOM230 [Suspect]
     Indication: PITUITARY-DEPENDENT CUSHING^S SYNDROME
     Dosage: UNK
     Route: 058
  2. SOM230 [Suspect]
     Dosage: UNK
     Dates: start: 20140430
  3. ATENOLOL [Concomitant]
     Dosage: 50 MG, UNK
  4. INSULIN DETEMIR [Concomitant]
     Dosage: 40 IU, QD
  5. METFORMIN [Concomitant]
     Dosage: 850 MG, BID
  6. HYDROCHLOROTHIAZIDE [Concomitant]
     Dosage: 25 MG, UNK
  7. AMLODIPINE [Concomitant]
     Dosage: 10 MG, QD

REACTIONS (1)
  - Atrial fibrillation [Recovered/Resolved]
